FAERS Safety Report 10212454 (Version 1)
Quarter: 2014Q2

REPORT INFORMATION
  Report Type: Spontaneous
  Country: US (occurrence: US)
  Receive Date: 20140602
  Receipt Date: 20140602
  Transmission Date: 20141212
  Serious: No
  Sender: FDA-Public Use
  Company Number: US-AMGEN-USASP2014037254

PATIENT
  Age: 67 Year
  Sex: Female
  Weight: 56.24 kg

DRUGS (9)
  1. ENBREL [Suspect]
     Indication: PRODUCT USED FOR UNKNOWN INDICATION
     Dosage: UNK
     Route: 065
  2. HUMIRA [Concomitant]
     Indication: RHEUMATOID ARTHRITIS
     Dosage: 40 MG, ONCE IN TWO WEEKS
     Route: 058
     Dates: start: 2012, end: 201403
  3. HUMIRA [Concomitant]
     Dosage: 40 MG, Q2WK
     Route: 058
     Dates: start: 20140413
  4. SULFAZINE [Concomitant]
     Indication: RHEUMATOID ARTHRITIS
     Dosage: UNK
  5. PLAQUENIL                          /00072602/ [Concomitant]
     Indication: RHEUMATOID ARTHRITIS
     Dosage: UNK
  6. LEVOTHYROXINE                      /00068002/ [Concomitant]
     Indication: HYPOTHYROIDISM
     Dosage: UNK
  7. NALTREXONE [Concomitant]
     Indication: RHEUMATOID ARTHRITIS
     Dosage: UNK
  8. FOLATE [Concomitant]
     Dosage: UNK
  9. ESTROGEN NOS W/TESTOSTERONE [Concomitant]
     Indication: PRODUCT USED FOR UNKNOWN INDICATION
     Dosage: UNK

REACTIONS (8)
  - Wrong technique in drug usage process [Recovered/Resolved]
  - Incorrect dose administered [Unknown]
  - Nausea [Recovered/Resolved]
  - Pulmonary fibrosis [Unknown]
  - Eczema [Unknown]
  - Injection site bruising [Unknown]
  - Nasopharyngitis [Unknown]
  - Upper respiratory tract infection [Recovered/Resolved]
